FAERS Safety Report 23460793 (Version 2)
Quarter: 2024Q2

REPORT INFORMATION
  Report Type: Spontaneous
  Country: JP (occurrence: JP)
  Receive Date: 20240131
  Receipt Date: 20240530
  Transmission Date: 20240716
  Serious: Yes (Other)
  Sender: FDA-Public Use
  Company Number: JP-JNJFOC-20240172770

PATIENT
  Age: 6 Decade
  Sex: Female

DRUGS (1)
  1. OPSUMIT [Suspect]
     Active Substance: MACITENTAN
     Indication: Portopulmonary hypertension
     Route: 048

REACTIONS (4)
  - Cardiac failure [Unknown]
  - Liver transplant [Unknown]
  - Infection [Unknown]
  - Anaemia [Unknown]
